FAERS Safety Report 5415345-6 (Version None)
Quarter: 2007Q3

REPORT INFORMATION
  Report Type: 
  Country: None (occurrence: None)
  Receive Date: 20070815
  Receipt Date: 20070808
  Transmission Date: 20080115
  Serious: Yes (Hospitalization)
  Sender: FDA-Public Use
  Company Number: FR-AVENTIS-200712545FR

PATIENT
  Age: 75 Year
  Sex: Male
  Weight: 65 kg

DRUGS (6)
  1. RIFADIN [Suspect]
     Indication: STAPHYLOCOCCAL INFECTION
     Route: 048
     Dates: start: 20070626, end: 20070702
  2. BACTRIM [Concomitant]
     Route: 048
     Dates: start: 20070626, end: 20070702
  3. ATARAX                             /00058402/ [Concomitant]
     Indication: DRUG USE FOR UNKNOWN INDICATION
  4. XYZALL                             /01530201/ [Concomitant]
     Indication: DRUG USE FOR UNKNOWN INDICATION
     Route: 048
  5. OPHTHALMOLOGICALS [Concomitant]
     Indication: DRUG USE FOR UNKNOWN INDICATION
     Route: 047
  6. XALACOM                            /01575601/ [Concomitant]
     Indication: DRUG USE FOR UNKNOWN INDICATION
     Route: 047

REACTIONS (5)
  - ATRIAL FIBRILLATION [None]
  - DRUG HYPERSENSITIVITY [None]
  - HYPERBILIRUBINAEMIA [None]
  - NAUSEA [None]
  - PYREXIA [None]
